FAERS Safety Report 7788453-2 (Version None)
Quarter: 2011Q3

REPORT INFORMATION
  Report Type: 
  Country: None (occurrence: None)
  Receive Date: 20110928
  Receipt Date: 20110912
  Transmission Date: 20111222
  Serious: No
  Sender: FDA-Public Use
  Company Number: B0750093A

PATIENT
  Age: 45 Year
  Sex: Male

DRUGS (4)
  1. STAVUDINE [Suspect]
     Indication: HIV INFECTION
     Dates: start: 19960101, end: 20090101
  2. CYCLOSPORINE [Concomitant]
  3. ZIDOVUDINE [Suspect]
     Indication: HIV INFECTION
     Dates: start: 19870101, end: 19950101
  4. HYPROMELLOSE [Concomitant]

REACTIONS (5)
  - LIPOATROPHY [None]
  - EXOPHTHALMOS [None]
  - DRY EYE [None]
  - KERATOPATHY [None]
  - LAGOPHTHALMOS [None]
